FAERS Safety Report 4984979-5 (Version None)
Quarter: 2006Q1

REPORT INFORMATION
  Report Type: 
  Country: None (occurrence: None)
  Receive Date: 20060309
  Receipt Date: 20050421
  Transmission Date: 20060701
  Serious: Yes (Other)
  Sender: FDA-Public Use
  Company Number: 402682

PATIENT
  Sex: 0

DRUGS (2)
  1. ACCUTANE [Suspect]
     Indication: ACNE
     Dosage: UNK
     Route: 065
  2. AMNESTEEM [Suspect]
     Indication: ACNE CYSTIC
     Dosage: UNK
     Route: 065
     Dates: start: 20050125

REACTIONS (2)
  - NO ADVERSE EFFECT [None]
  - PREGNANCY [None]
